FAERS Safety Report 20009638 (Version 1)
Quarter: 2021Q4

REPORT INFORMATION
  Report Type: Spontaneous
  Country: US (occurrence: US)
  Receive Date: 20211028
  Receipt Date: 20211028
  Transmission Date: 20220303
  Serious: Yes (Hospitalization)
  Sender: FDA-Public Use
  Company Number: None

PATIENT
  Sex: Male

DRUGS (24)
  1. EPOGEN [Suspect]
     Active Substance: ERYTHROPOIETIN
     Indication: Congenital hypogammaglobulinaemia
     Route: 058
     Dates: start: 20210318
  2. AFRIN SPR [Concomitant]
  3. ALBUTEROL [Concomitant]
     Active Substance: ALBUTEROL
  4. CHLOROQUINE PHOSPHAT [Concomitant]
  5. CLONIDINE [Concomitant]
     Active Substance: CLONIDINE
  6. DYMISTA [Concomitant]
     Active Substance: AZELASTINE HYDROCHLORIDE\FLUTICASONE PROPIONATE
  7. HALDOL [Concomitant]
     Active Substance: HALOPERIDOL
  8. KLONOPIN [Concomitant]
     Active Substance: CLONAZEPAM
  9. LORAZEPAM [Concomitant]
     Active Substance: LORAZEPAM
  10. MORPHINE SULFATE [Concomitant]
     Active Substance: MORPHINE SULFATE
  11. PREDNISONE [Concomitant]
     Active Substance: PREDNISONE
  12. REGLAN [Concomitant]
     Active Substance: METOCLOPRAMIDE HYDROCHLORIDE
  13. REMODULIN [Concomitant]
     Active Substance: TREPROSTINIL
  14. RISPERIDONE [Concomitant]
     Active Substance: RISPERIDONE
  15. SENOKOT [Concomitant]
     Active Substance: SENNOSIDES
  16. SERTRALINE [Concomitant]
     Active Substance: SERTRALINE HYDROCHLORIDE
  17. SPIRIVA [Concomitant]
     Active Substance: TIOTROPIUM BROMIDE MONOHYDRATE
  18. HANDIHLR [Concomitant]
  19. SPIRONOLACTONE [Concomitant]
     Active Substance: SPIRONOLACTONE
  20. SYMBICORT [Concomitant]
     Active Substance: BUDESONIDE\FORMOTEROL FUMARATE DIHYDRATE
  21. TORSEMIDE [Concomitant]
     Active Substance: TORSEMIDE
  22. TPN ELECTROL [Concomitant]
  23. TYLENOL [Concomitant]
     Active Substance: ACETAMINOPHEN
  24. ZOFRAN [Concomitant]
     Active Substance: ONDANSETRON HYDROCHLORIDE

REACTIONS (1)
  - Renal disorder [None]
